FAERS Safety Report 17346500 (Version 1)
Quarter: 2020Q1

REPORT INFORMATION
  Report Type: Report from Study
  Country: US (occurrence: US)
  Receive Date: 20200129
  Receipt Date: 20200129
  Transmission Date: 20200409
  Serious: No
  Sender: FDA-Public Use
  Company Number: US-EXELIXIS-CABO-19022908

PATIENT
  Sex: Male

DRUGS (1)
  1. CABOMETYX [Suspect]
     Active Substance: CABOZANTINIB S-MALATE
     Indication: RENAL CANCER
     Dosage: 60 MG, QD (AM WITHOUT FOOD 2 HRS BEFORE AND 1 HR AFTER)
     Dates: start: 20190619

REACTIONS (9)
  - Fatigue [Unknown]
  - Hypothyroidism [Not Recovered/Not Resolved]
  - Blood pressure increased [Recovered/Resolved]
  - Nausea [Not Recovered/Not Resolved]
  - Weight decreased [Unknown]
  - Diarrhoea [Not Recovered/Not Resolved]
  - Liver function test increased [Unknown]
  - Blood potassium increased [Unknown]
  - Somnolence [Not Recovered/Not Resolved]
